FAERS Safety Report 5211590-3 (Version None)
Quarter: 2007Q1

REPORT INFORMATION
  Report Type: 
  Country: None (occurrence: None)
  Receive Date: 20070117
  Receipt Date: 20070117
  Transmission Date: 20070707
  Serious: Yes (Other)
  Sender: FDA-Public Use
  Company Number: None

PATIENT
  Age: 67 Year
  Sex: Male
  Weight: 72.2 kg

DRUGS (1)
  1. ERYTHROMYCIN [Suspect]
     Dosage: 250MG X 1 IV
     Route: 042
     Dates: start: 20061218, end: 20061218

REACTIONS (1)
  - HYPERSENSITIVITY [None]
